FAERS Safety Report 4532947-X (Version None)
Quarter: 2004Q4

REPORT INFORMATION
  Report Type: 
  Country: None (occurrence: None)
  Receive Date: 20041206
  Receipt Date: 20041011
  Transmission Date: 20050328
  Serious: No
  Sender: FDA-Public Use
  Company Number: USA041080788

PATIENT
  Sex: Female

DRUGS (2)
  1. CYMBALTA [Suspect]
     Dosage: 30 MG DAY
     Dates: start: 20041009
  2. CLARITIN [Concomitant]

REACTIONS (4)
  - CHILLS [None]
  - DIZZINESS [None]
  - MYDRIASIS [None]
  - NAUSEA [None]
